FAERS Safety Report 25516691 (Version 1)
Quarter: 2025Q3

REPORT INFORMATION
  Report Type: Spontaneous
  Country: GB (occurrence: GB)
  Receive Date: 20250704
  Receipt Date: 20250704
  Transmission Date: 20251020
  Serious: Yes (Hospitalization, Other)
  Sender: AUROBINDO
  Company Number: None

PATIENT
  Sex: Female

DRUGS (3)
  1. DAPSONE [Suspect]
     Active Substance: DAPSONE
     Indication: Pemphigoid
     Route: 065
  2. DOXYCYCLINE [Concomitant]
     Active Substance: DOXYCYCLINE
     Route: 065
  3. PREDNISOLONE [Concomitant]
     Active Substance: PREDNISOLONE
     Route: 065

REACTIONS (3)
  - Methaemoglobinaemia [Unknown]
  - Hypoxia [Recovering/Resolving]
  - Dyspnoea [Recovering/Resolving]
